FAERS Safety Report 5040519-6 (Version None)
Quarter: 2006Q2

REPORT INFORMATION
  Report Type: 
  Country: None (occurrence: None)
  Receive Date: 20060630
  Receipt Date: 20050126
  Transmission Date: 20061013
  Serious: Yes (Death)
  Sender: FDA-Public Use
  Company Number: US-ABBOTT-05P-163-0288336-00

PATIENT
  Age: 45 Year
  Sex: Male

DRUGS (11)
  1. RITONAVIR SOFT GELATIN CAPSULES [Suspect]
     Indication: HIV INFECTION
     Route: 048
     Dates: start: 20030924, end: 20031212
  2. SAQUINAVIR [Concomitant]
     Indication: HIV INFECTION
     Route: 048
     Dates: start: 20030924, end: 20031212
  3. ZIDOVUDINE [Concomitant]
     Indication: HIV INFECTION
     Dates: start: 20030924
  4. LAMIVUDINE [Concomitant]
     Indication: HIV INFECTION
     Dates: start: 20030924
  5. ABACAVIR [Concomitant]
     Indication: HIV INFECTION
     Dates: start: 20000705
  6. ENFUVIRTIDE [Concomitant]
     Indication: HIV INFECTION
     Dates: start: 20030924, end: 20031229
  7. DRONABINOL [Concomitant]
     Indication: ANOREXIA
     Dates: start: 20030414, end: 20031229
  8. MULTIVITAMIN ^LAPPE^ [Concomitant]
     Indication: VITAMIN SUPPLEMENTATION
     Dates: end: 20031229
  9. OXANDROLONE [Concomitant]
     Indication: HYPOGONADISM
     Dates: start: 20030101, end: 20031229
  10. TRIZIVIR [Concomitant]
     Indication: HIV INFECTION
  11. TIPRANAVIR [Concomitant]
     Indication: HIV INFECTION
     Route: 048
     Dates: start: 20031212, end: 20031230

REACTIONS (2)
  - DEATH [None]
  - DRUG INEFFECTIVE [None]
